FAERS Safety Report 7726072-4 (Version None)
Quarter: 2011Q3

REPORT INFORMATION
  Report Type: 
  Country: None (occurrence: None)
  Receive Date: 20110902
  Receipt Date: 20110830
  Transmission Date: 20111222
  Serious: Yes (Hospitalization, Other)
  Sender: FDA-Public Use
  Company Number: NL-ALLERGAN-1109640US

PATIENT
  Age: 29 Year
  Sex: Male

DRUGS (1)
  1. BOTOX [Suspect]
     Indication: HYPERHIDROSIS
     Dosage: 100 UNITS, SINGLE
     Dates: start: 20110713, end: 20110713

REACTIONS (3)
  - PAIN [None]
  - PALPITATIONS [None]
  - DRUG INEFFECTIVE [None]
